FAERS Safety Report 6584048 (Version 2)
Quarter: 2013Q2

REPORT INFORMATION
  Report Type: Report from Study
  Country: US (occurrence: US)
  Receive Date: 20080315
  Receipt Date: 20130624
  Transmission Date: 20140414
  Serious: Yes (Other)
  Sender: FDA-Public Use
  Company Number: US-ABBOTT-08P-163-0434936-00

PATIENT
  Sex: Female
  Weight: 63.56 kg

DRUGS (19)
  1. HUMIRA 40 MG/ 0.8 ML PRE-FILLED SYRINGE [Suspect]
     Indication: RHEUMATOID ARTHRITIS
     Route: 058
  2. HUMIRA 40 MG/ 0.8 ML PRE-FILLED SYRINGE [Suspect]
     Route: 058
  3. HUMIRA PEN [Suspect]
     Indication: RHEUMATOID ARTHRITIS
  4. FOLIC ACID [Concomitant]
     Indication: PROPHYLAXIS
  5. FOLIC ACID [Concomitant]
     Indication: ORAL DISORDER
  6. ARENCIA [Concomitant]
     Indication: RHEUMATOID ARTHRITIS
  7. PRILOSEC [Concomitant]
     Indication: DRUG THERAPY
  8. PRILOSEC [Concomitant]
     Indication: GASTROOESOPHAGEAL REFLUX DISEASE
  9. BIOTIN [Concomitant]
     Indication: SUPPLEMENTATION THERAPY
  10. IBUPROFEN [Concomitant]
     Indication: PRODUCT USED FOR UNKNOWN INDICATION
  11. PLAQUENIL [Concomitant]
     Indication: RHEUMATOID ARTHRITIS
  12. CYMBALTA [Concomitant]
     Indication: PAIN
  13. XELJANZ [Concomitant]
     Indication: RHEUMATOID ARTHRITIS
  14. LIPITOR [Concomitant]
     Indication: BLOOD CHOLESTEROL INCREASED
  15. TEMAZEPAM [Concomitant]
     Indication: SLEEP DISORDER THERAPY
  16. PREDNISONE [Concomitant]
     Indication: RHEUMATOID ARTHRITIS
  17. CALTRATE WITH VITAMIN D AND MAGNESIUM [Concomitant]
     Indication: VITAMIN SUPPLEMENTATION
  18. FISH OIL [Concomitant]
     Indication: SUPPLEMENTATION THERAPY
  19. OCCUVITE MULTIVITAMIN [Concomitant]
     Indication: VITAMIN SUPPLEMENTATION

REACTIONS (8)
  - Rheumatoid nodule [Not Recovered/Not Resolved]
  - Arthritis [Not Recovered/Not Resolved]
  - Rheumatoid arthritis [Not Recovered/Not Resolved]
  - Grip strength decreased [Not Recovered/Not Resolved]
  - Finger deformity [Not Recovered/Not Resolved]
  - Bronchitis [Recovered/Resolved]
  - Drug ineffective [Not Recovered/Not Resolved]
  - Foot deformity [Not Recovered/Not Resolved]
